FAERS Safety Report 7288537-1 (Version None)
Quarter: 2011Q1

REPORT INFORMATION
  Report Type: 
  Country: None (occurrence: None)
  Receive Date: 20110211
  Receipt Date: 20110209
  Transmission Date: 20110831
  Serious: Yes (Death)
  Sender: FDA-Public Use
  Company Number: JP-SANOFI-AVENTIS-2011SA008320

PATIENT
  Age: 73 Year
  Sex: Male

DRUGS (3)
  1. CISPLATIN [Concomitant]
  2. 5-FU [Concomitant]
  3. TAXOTERE [Suspect]

REACTIONS (1)
  - INTERSTITIAL LUNG DISEASE [None]
